FAERS Safety Report 5020398-3 (Version None)
Quarter: 2006Q2

REPORT INFORMATION
  Report Type: 
  Country: None (occurrence: None)
  Receive Date: 20060601
  Receipt Date: 20060517
  Transmission Date: 20061013
  Serious: Yes (Hospitalization)
  Sender: FDA-Public Use
  Company Number: CHF-20060101

PATIENT
  Age: 1 Day
  Sex: Male

DRUGS (1)
  1. CUROSURF [Suspect]
     Indication: NEONATAL RESPIRATORY DISTRESS SYNDROME
     Dosage: MG INTRATRACHEAL
     Route: 039
     Dates: start: 20060410

REACTIONS (6)
  - INFECTION [None]
  - LUNG DISORDER [None]
  - LUNG INFILTRATION [None]
  - PNEUMONIA [None]
  - PULMONARY HYPERTENSION [None]
  - RESPIRATORY DISORDER NEONATAL [None]
